FAERS Safety Report 6012351-8 (Version None)
Quarter: 2008Q4

REPORT INFORMATION
  Report Type: 
  Country: None (occurrence: None)
  Receive Date: 20081218
  Receipt Date: 20080828
  Transmission Date: 20090506
  Serious: No
  Sender: FDA-Public Use
  Company Number: US-ASTRAZENECA-2008UW17929

PATIENT

DRUGS (2)
  1. SYMBICORT [Suspect]
     Dosage: 160 MCG/4.5
     Route: 055
  2. SPIRIVA [Interacting]
     Route: 065

REACTIONS (2)
  - DRUG INTERACTION [None]
  - DYSPHONIA [None]
